FAERS Safety Report 14335306 (Version 10)
Quarter: 2018Q1

REPORT INFORMATION
  Report Type: Report from Study
  Country: BR (occurrence: BR)
  Receive Date: 20171229
  Receipt Date: 20180314
  Transmission Date: 20180509
  Serious: Yes (Hospitalization)
  Sender: FDA-Public Use
  Company Number: BR-ROCHE-1977807

PATIENT
  Age: 65 Year
  Sex: Female
  Weight: 64 kg

DRUGS (32)
  1. GLUCOSE [Concomitant]
     Active Substance: DEXTROSE
     Indication: DIARRHOEA
     Route: 065
     Dates: start: 20171107, end: 20171112
  2. HEPARIN SODIUM. [Concomitant]
     Active Substance: HEPARIN SODIUM
     Indication: DIARRHOEA
     Dosage: DOSE: 5000 UNIT
     Route: 065
     Dates: start: 20171123, end: 20171130
  3. ONDANSETRON [Concomitant]
     Active Substance: ONDANSETRON
     Indication: DIARRHOEA
     Route: 065
     Dates: start: 20170608, end: 20170608
  4. DIPIRONE [Concomitant]
     Active Substance: METAMIZOLE SODIUM
     Indication: DIARRHOEA
     Route: 065
     Dates: start: 20171107, end: 20171110
  5. MORFINE [Concomitant]
     Active Substance: MORPHINE
     Indication: DIARRHOEA
     Route: 065
     Dates: start: 20171107, end: 20171112
  6. PARACETAMOL [Concomitant]
     Active Substance: ACETAMINOPHEN
     Indication: DIARRHOEA
     Route: 065
     Dates: start: 20171106, end: 20171106
  7. PREDNISONE. [Concomitant]
     Active Substance: PREDNISONE
     Route: 065
     Dates: start: 20171107
  8. LOPERAMIDE [Concomitant]
     Active Substance: LOPERAMIDE
     Route: 065
     Dates: start: 20171104
  9. BEVACIZUMAB. [Suspect]
     Active Substance: BEVACIZUMAB
     Indication: COLORECTAL CANCER METASTATIC
     Dosage: DATE OF MOST RECENT DOSE (320 MG) OF BEVACIZUMAB (AT 09:45) PRIOR TO SAE: 26/JUL/2017
     Route: 042
     Dates: start: 20170608
  10. ONDANSETRON [Concomitant]
     Active Substance: ONDANSETRON
     Indication: PREMEDICATION
     Route: 065
     Dates: start: 20170620
  11. DIMETICONE [Concomitant]
     Active Substance: DIMETHICONE
     Indication: DIARRHOEA
     Route: 065
     Dates: start: 20171128, end: 20171130
  12. LOPERAMIDE [Concomitant]
     Active Substance: LOPERAMIDE
     Indication: DIARRHOEA
     Route: 065
     Dates: start: 20171123, end: 20171130
  13. LOPERAMIDE [Concomitant]
     Active Substance: LOPERAMIDE
     Route: 065
     Dates: start: 20171108, end: 20171112
  14. FOLINIC ACID [Suspect]
     Active Substance: LEUCOVORIN
     Indication: COLORECTAL CANCER METASTATIC
     Dosage: DATE OF MOST RECENT DOSE OF FOLINIC ACID PRIOR TO SAE: 26/JUL/2017
     Route: 042
     Dates: start: 20170608
  15. ATENOLOL. [Concomitant]
     Active Substance: ATENOLOL
     Indication: HYPERTENSION
     Route: 065
     Dates: start: 1996
  16. ONDANSETRON [Concomitant]
     Active Substance: ONDANSETRON
     Route: 065
     Dates: start: 20171107, end: 20171112
  17. DIPIRONE [Concomitant]
     Active Substance: METAMIZOLE SODIUM
     Route: 065
     Dates: start: 20171123, end: 20171130
  18. ATEZOLIZUMAB. [Suspect]
     Active Substance: ATEZOLIZUMAB
     Indication: COLORECTAL CANCER METASTATIC
     Dosage: MOST RECENT DOSE PRIOR TO ACUTE RENAL FAILURE ON 06/DEC/2017, DOSE: 840 MG
     Route: 042
     Dates: start: 20171101
  19. COBIMETINIB. [Suspect]
     Active Substance: COBIMETINIB
     Indication: COLORECTAL CANCER METASTATIC
     Dosage: MOST RECENT DOSE PRIOR TO ACUTE RENAL FAILURE ON 06/DEC/2017, DOSE: 20 MG
     Route: 048
     Dates: start: 20171101
  20. HEPARIN SODIUM. [Concomitant]
     Active Substance: HEPARIN SODIUM
     Route: 065
     Dates: start: 20171107, end: 20171110
  21. PREDNISONE. [Concomitant]
     Active Substance: PREDNISONE
     Route: 065
     Dates: start: 20171123, end: 20171130
  22. OXALIPLATIN. [Suspect]
     Active Substance: OXALIPLATIN
     Indication: COLORECTAL CANCER METASTATIC
     Dosage: DATE OF MOST RECENT DOSE OF OXALIPALTIN PRIOR TO SAE: 26/JUL/2017
     Route: 042
     Dates: start: 20170608
  23. CAPTOPRIL. [Concomitant]
     Active Substance: CAPTOPRIL
     Indication: HYPERTENSION
     Route: 065
     Dates: start: 1996
  24. SODIUM BICARBONATE. [Concomitant]
     Active Substance: SODIUM BICARBONATE
     Indication: DIARRHOEA
     Route: 065
     Dates: start: 20171107, end: 20171107
  25. 5-FLUOROURACIL [Suspect]
     Active Substance: FLUOROURACIL
     Indication: COLORECTAL CANCER METASTATIC
     Dosage: DATE OF MOST RECENT DOSE OF FLUOROURACIL PRIOR TO SAE: 26/JUL/2017
     Route: 042
     Dates: start: 20170608
  26. DEXAMETHASONE. [Concomitant]
     Active Substance: DEXAMETHASONE
     Indication: PREMEDICATION
     Route: 065
     Dates: start: 20170608
  27. RANITIDINE. [Concomitant]
     Active Substance: RANITIDINE
     Indication: PREMEDICATION
     Route: 065
     Dates: start: 20170608
  28. AMPICILLIN [Concomitant]
     Active Substance: AMPICILLIN
     Indication: DIARRHOEA
     Route: 065
     Dates: start: 20171107, end: 20171113
  29. METILPREDNISOLONE [Concomitant]
     Active Substance: METHYLPREDNISOLONE
     Indication: DIARRHOEA
     Route: 065
     Dates: start: 20171107, end: 20171111
  30. PARACETAMOL [Concomitant]
     Active Substance: ACETAMINOPHEN
     Route: 065
     Dates: start: 20171123, end: 20171130
  31. PREDNISONE. [Concomitant]
     Active Substance: PREDNISONE
     Indication: DIARRHOEA
     Route: 065
     Dates: start: 20171112, end: 20171112
  32. PREDNISONE. [Concomitant]
     Active Substance: PREDNISONE
     Route: 065
     Dates: start: 20171215, end: 20171224

REACTIONS (2)
  - Acute kidney injury [Recovered/Resolved]
  - Pyelonephritis [Recovered/Resolved]

NARRATIVE: CASE EVENT DATE: 20170809
